FAERS Safety Report 23745411 (Version 1)
Quarter: 2024Q2

REPORT INFORMATION
  Report Type: Spontaneous
  Country: US (occurrence: US)
  Receive Date: 20240416
  Receipt Date: 20240416
  Transmission Date: 20240716
  Serious: No
  Sender: FDA-Public Use
  Company Number: US-SA-SAC20240409001041

PATIENT
  Age: 53 Year
  Sex: Female
  Weight: 61 kg

DRUGS (2)
  1. DUPIXENT [Suspect]
     Active Substance: DUPILUMAB
     Indication: Dermatitis atopic
     Dosage: 600 MG, 1X
     Route: 058
     Dates: start: 20240402, end: 20240402
  2. DIPHENHYDRAMINE HYDROCHLORIDE [Concomitant]
     Active Substance: DIPHENHYDRAMINE HYDROCHLORIDE

REACTIONS (6)
  - Oropharyngeal pain [Unknown]
  - Eczema [Not Recovered/Not Resolved]
  - Erythema [Unknown]
  - Scab [Unknown]
  - Rash erythematous [Unknown]
  - Dry skin [Unknown]

NARRATIVE: CASE EVENT DATE: 20240401
